FAERS Safety Report 14807083 (Version 1)
Quarter: 2018Q2

REPORT INFORMATION
  Report Type: Report from Study
  Country: JP (occurrence: JP)
  Receive Date: 20180425
  Receipt Date: 20180425
  Transmission Date: 20180711
  Serious: Yes (Other)
  Sender: FDA-Public Use
  Company Number: JP-MYLANLABS-2018M1026960

PATIENT
  Sex: Female

DRUGS (1)
  1. TETRACOSACTIDE [Suspect]
     Active Substance: COSYNTROPIN
     Indication: INFANTILE SPASMS
     Dosage: IM INJECTION OF TETRACOSACTIDE 0.0125 MG/KG ONCE DAILY DOSE FOR 14 CONSECUTIVE DAYS AND ON SEVEN ...
     Route: 030

REACTIONS (2)
  - Cerebral disorder [Unknown]
  - Hypothalamic pituitary adrenal axis suppression [Unknown]
